FAERS Safety Report 6526295-6 (Version None)
Quarter: 2009Q4

REPORT INFORMATION
  Report Type: 
  Country: None (occurrence: None)
  Receive Date: 20091222
  Receipt Date: 20091209
  Transmission Date: 20100525
  Serious: Yes (Other)
  Sender: FDA-Public Use
  Company Number: 230155M09GBR

PATIENT

DRUGS (1)
  1. REBIF [Suspect]

REACTIONS (1)
  - STEVENS-JOHNSON SYNDROME [None]
